FAERS Safety Report 6910829-3 (Version None)
Quarter: 2010Q3

REPORT INFORMATION
  Report Type: 
  Country: None (occurrence: None)
  Receive Date: 20100806
  Receipt Date: 20100728
  Transmission Date: 20110219
  Serious: Yes (Hospitalization, Other)
  Sender: FDA-Public Use
  Company Number: NZ-PURDUE-USA-2010-0045204

PATIENT
  Sex: Male
  Weight: 114.4 kg

DRUGS (14)
  1. BLINDED BTDS PATCH [Suspect]
     Indication: DIABETIC NEUROPATHY
     Dosage: 20 MCG/HR, Q1H
     Dates: start: 20100713
  2. BLINDED PLACEBO TRANSDERMAL PATCH [Suspect]
     Indication: DIABETIC NEUROPATHY
     Dosage: 20 MCG/HR, Q1H
     Dates: start: 20100713
  3. METFORMIN HCL [Concomitant]
     Dosage: UNK
     Dates: start: 20100611
  4. PROTAPHANE                         /00030513/ [Concomitant]
     Dosage: UNK
     Dates: start: 20100101
  5. NOVORAPID [Concomitant]
     Dosage: UNK
     Dates: start: 20100101
  6. CILAZAPRIL [Concomitant]
     Dosage: UNK
     Dates: start: 20100601
  7. AMITRIPTYLINE HYDROCHLORIDE [Concomitant]
     Dosage: UNK
     Dates: start: 20100329
  8. ACETAMINOPHEN [Concomitant]
     Dosage: UNK
  9. ASPIRIN [Concomitant]
     Dosage: UNK
     Dates: start: 20100622
  10. GLYCERYL TRINITRATE [Concomitant]
     Dosage: UNK
     Dates: start: 20100622
  11. OMEPRAZOLE [Concomitant]
     Dosage: UNK
     Dates: start: 20100622
  12. FRUSEMIDE                          /00032601/ [Concomitant]
     Dosage: UNK
     Dates: start: 20100629
  13. METOPROLOL                         /00376902/ [Concomitant]
     Dosage: UNK
     Dates: start: 20100709
  14. SIMVASTATIN [Concomitant]
     Dosage: UNK
     Dates: start: 20100709

REACTIONS (2)
  - OEDEMA PERIPHERAL [None]
  - PAIN IN EXTREMITY [None]
